FAERS Safety Report 17486712 (Version 3)
Quarter: 2020Q1

REPORT INFORMATION
  Report Type: Report from Study
  Country: IE (occurrence: IE)
  Receive Date: 20200303
  Receipt Date: 20200318
  Transmission Date: 20200409
  Serious: Yes (Hospitalization)
  Sender: FDA-Public Use
  Company Number: IE-ASTRAZENECA-2020SE30323

PATIENT
  Age: 9 Month
  Sex: Male

DRUGS (3)
  1. SYNAGIS [Suspect]
     Active Substance: PALIVIZUMAB
     Indication: PREMATURE BABY
     Dosage: 15MG/KG MONTHLY (30-OCT-2019), 15MG/KG MONTHLY (28-JAN-2020)
     Route: 030
     Dates: start: 20191030, end: 20200128
  2. ABIDEC [Concomitant]
     Indication: PRODUCT USED FOR UNKNOWN INDICATION
     Route: 050
  3. SYNAGIS [Suspect]
     Active Substance: PALIVIZUMAB
     Indication: PREMATURE BABY
     Route: 030

REACTIONS (5)
  - Respiratory distress [Recovered/Resolved]
  - Vomiting [Recovered/Resolved]
  - Bronchiolitis [Recovered/Resolved]
  - Human bocavirus infection [Recovered/Resolved]
  - Respiratory tract congestion [Recovered/Resolved]

NARRATIVE: CASE EVENT DATE: 202002
